FAERS Safety Report 12487054 (Version 1)
Quarter: 2016Q2

REPORT INFORMATION
  Report Type: Spontaneous
  Country: BE (occurrence: BE)
  Receive Date: 20160622
  Receipt Date: 20160622
  Transmission Date: 20160815
  Serious: Yes (Other)
  Sender: FDA-Public Use
  Company Number: BE-AMGEN-BELSP2016072524

PATIENT
  Age: 48 Year
  Sex: Female

DRUGS (1)
  1. ENBREL [Suspect]
     Active Substance: ETANERCEPT
     Indication: PRODUCT USED FOR UNKNOWN INDICATION
     Dosage: UNK
     Route: 058
     Dates: start: 20160519

REACTIONS (8)
  - Pain [Recovering/Resolving]
  - Depression [Unknown]
  - Formication [Recovered/Resolved]
  - Immobile [Recovering/Resolving]
  - Arthralgia [Recovered/Resolved]
  - Spinal pain [Recovered/Resolved]
  - Fatigue [Unknown]
  - Pallor [Recovered/Resolved]

NARRATIVE: CASE EVENT DATE: 2016
